FAERS Safety Report 23069239 (Version 2)
Quarter: 2023Q4

REPORT INFORMATION
  Report Type: Spontaneous
  Country: US (occurrence: US)
  Receive Date: 20231016
  Receipt Date: 20231023
  Transmission Date: 20240110
  Serious: Yes (Other)
  Sender: FDA-Public Use
  Company Number: US-JUBILANT PHARMA LTD-2023US001241

PATIENT
  Age: 57 Year
  Sex: Male

DRUGS (8)
  1. QUETIAPINE FUMARATE [Suspect]
     Active Substance: QUETIAPINE FUMARATE
     Indication: Product used for unknown indication
     Dosage: INCREASED TITRATION TO 150 MG
  2. OLANZAPINE [Suspect]
     Active Substance: OLANZAPINE
     Indication: Product used for unknown indication
     Dosage: 10 MG,  UNK
     Route: 065
  3. RISPERIDONE [Suspect]
     Active Substance: RISPERIDONE
     Indication: Product used for unknown indication
     Dosage: 2 MG,  UNK
     Route: 065
  4. CARBIDOPA\LEVODOPA [Concomitant]
     Active Substance: CARBIDOPA\LEVODOPA
     Indication: Parkinson^s disease
     Dosage: UNK,UNK
     Route: 065
  5. CLONAZEPAM [Concomitant]
     Active Substance: CLONAZEPAM
     Indication: Parkinson^s disease
     Dosage: UNK,UNK
     Route: 065
  6. PAROXETINE [Concomitant]
     Active Substance: PAROXETINE
     Indication: Parkinson^s disease
     Dosage: UNK,UNK
     Route: 065
  7. RIVASTIGMINE [Concomitant]
     Active Substance: RIVASTIGMINE
     Indication: Parkinson^s disease
     Dosage: UNK,UNK
     Route: 065
  8. MEMANTINE [Concomitant]
     Active Substance: MEMANTINE
     Indication: Product used for unknown indication
     Dosage: UNK,UNK
     Route: 065

REACTIONS (7)
  - Hallucination, visual [Recovered/Resolved]
  - Hallucination, auditory [Recovered/Resolved]
  - Hallucination, olfactory [Recovered/Resolved]
  - Dementia with Lewy bodies [Recovered/Resolved]
  - Delusion [Recovered/Resolved]
  - Motor dysfunction [Unknown]
  - Condition aggravated [Unknown]
